FAERS Safety Report 14283632 (Version 2)
Quarter: 2018Q1

REPORT INFORMATION
  Report Type: Spontaneous
  Country: IT (occurrence: IT)
  Receive Date: 20171214
  Receipt Date: 20180124
  Transmission Date: 20180509
  Serious: Yes (Other)
  Sender: FDA-Public Use
  Company Number: IT-ROCHE-2024605

PATIENT
  Age: 62 Year
  Sex: Male

DRUGS (5)
  1. OXALIPLATIN. [Suspect]
     Active Substance: OXALIPLATIN
     Route: 042
  2. XELODA [Suspect]
     Active Substance: CAPECITABINE
     Dosage: FOR CYCYLE OF 14 DAYS.
     Route: 048
  3. XELODA [Suspect]
     Active Substance: CAPECITABINE
     Indication: COLON CANCER
     Dosage: 120 X 500 MG- BLISTER PACK ORAL USE?CYCLICAL?ON 09/AUG/2017, MOST RECENT DOSE OF CAPECITABINE.
     Route: 048
     Dates: start: 20170315
  4. OXALIPLATIN. [Suspect]
     Active Substance: OXALIPLATIN
     Indication: COLON CANCER
     Dosage: ON 09/AUG/2017, HE RECEIVED MOST RECENT DOSE OF OXALIPLATIN.
     Route: 042
     Dates: start: 20170315, end: 20170809
  5. AVASTIN [Suspect]
     Active Substance: BEVACIZUMAB
     Indication: COLON CANCER
     Route: 042
     Dates: start: 20170315

REACTIONS (5)
  - Paraesthesia [Recovered/Resolved]
  - Nausea [Recovered/Resolved]
  - Vomiting [Recovered/Resolved]
  - Asthenia [Recovered/Resolved]
  - Hypertension [Recovered/Resolved]

NARRATIVE: CASE EVENT DATE: 20170420
